FAERS Safety Report 8282662-4 (Version None)
Quarter: 2012Q2

REPORT INFORMATION
  Report Type: 
  Country: None (occurrence: None)
  Receive Date: 20120413
  Receipt Date: 20120410
  Transmission Date: 20120825
  Serious: No
  Sender: FDA-Public Use
  Company Number: US-PFIZER INC-2012090169

PATIENT
  Sex: Male

DRUGS (3)
  1. OPANA [Suspect]
     Indication: BACK PAIN
     Dosage: UNK
     Dates: end: 20120401
  2. BENEFIX [Suspect]
     Indication: FACTOR IX DEFICIENCY
     Dosage: 3000 IU, 2-3 TIMES A WEEK
  3. OPANA [Suspect]
     Indication: ARTHRALGIA

REACTIONS (2)
  - BACK PAIN [None]
  - ARTHRALGIA [None]
